FAERS Safety Report 8112785-1 (Version None)
Quarter: 2012Q1

REPORT INFORMATION
  Report Type: 
  Country: None (occurrence: None)
  Receive Date: 20120203
  Receipt Date: 20120123
  Transmission Date: 20120608
  Serious: Yes (Hospitalization)
  Sender: FDA-Public Use
  Company Number: US-BRISTOL-MYERS SQUIBB COMPANY-16236309

PATIENT
  Age: 60 Year
  Sex: Female
  Weight: 86 kg

DRUGS (2)
  1. FLUDARA [Suspect]
     Indication: CHRONIC LYMPHOCYTIC LEUKAEMIA
     Dosage: 25MG/CC IS THE STRENGTH, DAY1-3 Q28 DAYS
     Route: 042
     Dates: start: 20110810
  2. CYTOXAN [Suspect]
     Indication: CHRONIC LYMPHOCYTIC LEUKAEMIA
     Dosage: 20MG/CC IS THE STRENGTH. DAY1-3 Q28 DAYS
     Route: 042
     Dates: start: 20110810

REACTIONS (1)
  - TUMOUR LYSIS SYNDROME [None]
